FAERS Safety Report 6702653-1 (Version None)
Quarter: 2010Q2

REPORT INFORMATION
  Report Type: 
  Country: None (occurrence: None)
  Receive Date: 20100429
  Receipt Date: 20100426
  Transmission Date: 20101027
  Serious: Yes (Hospitalization, Other)
  Sender: FDA-Public Use
  Company Number: US-ROXANE LABORATORIES, INC.-2010-RO-00465RO

PATIENT
  Age: 34 Year
  Sex: Female

DRUGS (4)
  1. PROPRANOLOL [Suspect]
  2. CLONAZEPAM [Suspect]
  3. GLUCAGON [Concomitant]
  4. NALOXONE [Concomitant]

REACTIONS (7)
  - BRADYCARDIA [None]
  - BRUGADA SYNDROME [None]
  - DRUG SCREEN POSITIVE [None]
  - DRUG TOXICITY [None]
  - HYPOTENSION [None]
  - RESPIRATORY DEPRESSION [None]
  - UNRESPONSIVE TO STIMULI [None]
